FAERS Safety Report 21542066 (Version 7)
Quarter: 2023Q2

REPORT INFORMATION
  Report Type: Spontaneous
  Country: IN (occurrence: IN)
  Receive Date: 20221102
  Receipt Date: 20230505
  Transmission Date: 20230721
  Serious: Yes (Other)
  Sender: FDA-Public Use
  Company Number: IN-PFIZER INC-PV202200093650

PATIENT
  Age: 52 Year
  Sex: Female
  Weight: 80.5 kg

DRUGS (1)
  1. DACOMITINIB [Suspect]
     Active Substance: DACOMITINIB
     Indication: Lung cancer metastatic
     Dosage: 30 MG, OD
     Route: 048
     Dates: start: 2022

REACTIONS (5)
  - Blood pressure increased [Recovering/Resolving]
  - Haemoglobin decreased [Unknown]
  - Illness [Unknown]
  - Abdominal discomfort [Unknown]
  - Vomiting [Unknown]

NARRATIVE: CASE EVENT DATE: 20220929
